FAERS Safety Report 13613031 (Version 1)
Quarter: 2017Q2

REPORT INFORMATION
  Report Type: Spontaneous
  Country: HR (occurrence: HR)
  Receive Date: 20170605
  Receipt Date: 20170605
  Transmission Date: 20170830
  Serious: Yes (Hospitalization)
  Sender: FDA-Public Use
  Company Number: PHHY2017HR079362

PATIENT
  Age: 16 Year
  Sex: Male

DRUGS (2)
  1. VOLTAREN [Suspect]
     Active Substance: DICLOFENAC SODIUM
     Indication: OROPHARYNGEAL PAIN
     Dosage: 1 DF, 1 IN 1 D
     Route: 030
     Dates: start: 20071223, end: 20071223
  2. VOLTAREN [Suspect]
     Active Substance: DICLOFENAC SODIUM
     Indication: EYE IRRITATION

REACTIONS (6)
  - Pruritus [Unknown]
  - Toxic epidermal necrolysis [Recovered/Resolved with Sequelae]
  - Eye injury [Unknown]
  - Blindness [Not Recovered/Not Resolved]
  - Rash [Unknown]
  - Dry eye [Not Recovered/Not Resolved]

NARRATIVE: CASE EVENT DATE: 20071223
